FAERS Safety Report 4925886-3 (Version None)
Quarter: 2006Q1

REPORT INFORMATION
  Report Type: 
  Country: None (occurrence: None)
  Receive Date: 20060228
  Receipt Date: 20050408
  Transmission Date: 20060701
  Serious: Yes (Other)
  Sender: FDA-Public Use
  Company Number: US-GLAXOSMITHKLINE-A0553410A

PATIENT
  Age: 18 Year
  Sex: Male

DRUGS (3)
  1. LAMICTAL [Suspect]
     Route: 048
     Dates: start: 20050127
  2. DILANTIN [Suspect]
     Dates: start: 20050208
  3. NO CONCURRENT MEDICATION [Concomitant]

REACTIONS (1)
  - GRAND MAL CONVULSION [None]
